FAERS Safety Report 13674753 (Version 2)
Quarter: 2017Q2

REPORT INFORMATION
  Report Type: Report from Study
  Country: US (occurrence: US)
  Receive Date: 20170621
  Receipt Date: 20170626
  Transmission Date: 20170830
  Serious: Yes (Other)
  Sender: FDA-Public Use
  Company Number: US-AMGEN-USASL2017093468

PATIENT
  Age: 60 Year
  Sex: Male

DRUGS (1)
  1. ENBREL [Suspect]
     Active Substance: ETANERCEPT
     Indication: RHEUMATOID ARTHRITIS
     Dosage: 50 MG, QWK
     Route: 065
     Dates: start: 2007

REACTIONS (6)
  - Ill-defined disorder [Recovered/Resolved]
  - Nodule [Recovered/Resolved]
  - Accidental exposure to product [Unknown]
  - Knee arthroplasty [Unknown]
  - Injection site nerve damage [Unknown]
  - Viral upper respiratory tract infection [Unknown]
